FAERS Safety Report 10182471 (Version 1)
Quarter: 2014Q2

REPORT INFORMATION
  Report Type: Spontaneous
  Country: US (occurrence: None)
  Receive Date: 20140516
  Receipt Date: 20140516
  Transmission Date: 20141212
  Serious: Yes (Other)
  Sender: FDA-Public Use
  Company Number: ADR-2014-00550

PATIENT
  Age: 46 Year
  Sex: Female

DRUGS (2)
  1. BACLOFEN INTRATHECAL, 1,000 MCG/ML [Suspect]
     Indication: MUSCLE SPASTICITY
     Dates: start: 2010
  2. HYDROMORPHONE (INTRATHECAL) 8.0 MG/ML [Suspect]

REACTIONS (7)
  - Convulsion [None]
  - Muscle spasms [None]
  - Memory impairment [None]
  - Fall [None]
  - Urinary incontinence [None]
  - Fatigue [None]
  - Cognitive disorder [None]
